FAERS Safety Report 5486573-9 (Version None)
Quarter: 2007Q3

REPORT INFORMATION
  Report Type: 
  Country: None (occurrence: None)
  Receive Date: 20070920
  Receipt Date: 20070129
  Transmission Date: 20080115
  Serious: Yes (Hospitalization)
  Sender: FDA-Public Use
  Company Number: 07P-163-0358279-00

PATIENT
  Age: 56 Year
  Sex: Male
  Weight: 83.0083 kg

DRUGS (3)
  1. DEPAKOTE ER [Suspect]
     Indication: BIPOLAR I DISORDER
     Dosage: 250 MG, ONCE, PER ORAL
     Route: 048
     Dates: start: 20060701, end: 20060701
  2. TOPROL-XL [Concomitant]
  3. PAROXETINE HCL [Concomitant]

REACTIONS (3)
  - PANCREATITIS [None]
  - PNEUMONIA [None]
  - RASH [None]
